FAERS Safety Report 8177619-8 (Version None)
Quarter: 2012Q1

REPORT INFORMATION
  Report Type: 
  Country: None (occurrence: None)
  Receive Date: 20120301
  Receipt Date: 20120223
  Transmission Date: 20120608
  Serious: Yes (Other)
  Sender: FDA-Public Use
  Company Number: PHEH2012US004569

PATIENT
  Sex: Female

DRUGS (3)
  1. VITAMIN D [Concomitant]
     Dosage: 1000 IU, UNK
  2. CALCIUM [Concomitant]
  3. GILENYA [Suspect]
     Dosage: 0.5 MG, QD

REACTIONS (1)
  - VIITH NERVE PARALYSIS [None]
